FAERS Safety Report 5244922-0 (Version None)
Quarter: 2007Q1

REPORT INFORMATION
  Report Type: 
  Country: None (occurrence: None)
  Receive Date: 20070221
  Receipt Date: 20070221
  Transmission Date: 20070707
  Serious: No
  Sender: FDA-Public Use
  Company Number: None

PATIENT
  Age: 59 Year
  Sex: Female

DRUGS (7)
  1. FUROSEMIDE [Suspect]
     Indication: CARDIAC FAILURE CONGESTIVE
     Dosage: 1 PO QAM
     Route: 048
     Dates: end: 20070213
  2. DYNACIRC [Concomitant]
  3. GLUCOPHAGE [Concomitant]
  4. DIOVAN [Concomitant]
  5. COREG [Concomitant]
  6. PLAVIX [Concomitant]
  7. ZOCOR [Concomitant]

REACTIONS (2)
  - PHARMACEUTICAL PRODUCT COMPLAINT [None]
  - URINE OUTPUT DECREASED [None]
